FAERS Safety Report 23713096 (Version 1)
Quarter: 2024Q2

REPORT INFORMATION
  Report Type: Spontaneous
  Country: CN (occurrence: CN)
  Receive Date: 20240405
  Receipt Date: 20240405
  Transmission Date: 20240716
  Serious: Yes (Other)
  Sender: FDA-Public Use
  Company Number: None

PATIENT
  Age: 55 Year
  Sex: Female
  Weight: 71 kg

DRUGS (5)
  1. CYCLOPHOSPHAMIDE [Suspect]
     Active Substance: CYCLOPHOSPHAMIDE
     Indication: Breast cancer female
     Dosage: 1 G, ONE TIME IN ONE DAY, D1, DILUTED WITH 50 ML OF 0.9% SODIUM CHLORIDE
     Route: 041
     Dates: start: 20240227, end: 20240227
  2. SODIUM CHLORIDE [Suspect]
     Active Substance: SODIUM CHLORIDE
     Indication: Medication dilution
     Dosage: 50 ML, ONE TIME IN ONE DAY, D1, STRENGTH: 0.9%, DOSAGE FORM: INJECTION, USED TO DILUTE 1G OF CYCLOPH
     Route: 041
     Dates: start: 20240227, end: 20240227
  3. SODIUM CHLORIDE [Suspect]
     Active Substance: SODIUM CHLORIDE
     Dosage: 100 ML, ONE TIME IN ONE DAY, D1, STRENGTH: 0.9%, DOSAGE FORM: INJECTION, USED TO DILUTE 130 MG OF EP
     Route: 041
     Dates: start: 20240227, end: 20240227
  4. EPIRUBICIN HYDROCHLORIDE [Suspect]
     Active Substance: EPIRUBICIN HYDROCHLORIDE
     Indication: Breast cancer female
     Dosage: 130 MG, ONE TIME IN ONE DAY, D1, DILUTED WITH 50 ML OF STERILE WATER FOR INJECTION COMBINED WITH 100
     Route: 041
     Dates: start: 20240227, end: 20240227
  5. STERILE WATER [Suspect]
     Active Substance: WATER
     Indication: Medication dilution
     Dosage: 50 ML, ONE TIME IN ONE DAY, D1, USED TO DILUTE 130 MG OF EPIRUBICIN HYDROCHLORIDE COMBINED WITH 100
     Route: 041
     Dates: start: 20240227, end: 20240227

REACTIONS (1)
  - Liver injury [Recovering/Resolving]

NARRATIVE: CASE EVENT DATE: 20240318
